FAERS Safety Report 19160406 (Version 3)
Quarter: 2021Q3

REPORT INFORMATION
  Report Type: Report from Study
  Country: None (occurrence: US)
  Receive Date: 20210421
  Receipt Date: 20210720
  Transmission Date: 20211014
  Serious: Yes (Other)
  Sender: FDA-Public Use
  Company Number: US-ABBVIE-21K-163-3862931-00

PATIENT
  Sex: Female

DRUGS (2)
  1. HUMIRA [Suspect]
     Active Substance: ADALIMUMAB
     Indication: PSORIASIS
     Route: 058
  2. HUMIRA [Suspect]
     Active Substance: ADALIMUMAB
     Indication: PSORIATIC ARTHROPATHY
     Route: 058
     Dates: start: 20210410

REACTIONS (15)
  - Gait disturbance [Recovering/Resolving]
  - Dysstasia [Not Recovered/Not Resolved]
  - Peripheral swelling [Recovering/Resolving]
  - Loss of personal independence in daily activities [Not Recovered/Not Resolved]
  - Muscle spasms [Unknown]
  - Adverse drug reaction [Unknown]
  - Lower limb fracture [Unknown]
  - Joint range of motion decreased [Not Recovered/Not Resolved]
  - Neck pain [Unknown]
  - Back pain [Unknown]
  - Sitting disability [Unknown]
  - Swelling [Recovering/Resolving]
  - Pain in extremity [Unknown]
  - Limb mass [Unknown]
  - Pain [Recovering/Resolving]

NARRATIVE: CASE EVENT DATE: 2015
